FAERS Safety Report 20320040 (Version 1)
Quarter: 2022Q1

REPORT INFORMATION
  Report Type: Spontaneous
  Country: US (occurrence: None)
  Receive Date: 20220111
  Receipt Date: 20220111
  Transmission Date: 20220423
  Serious: No
  Sender: FDA-Public Use
  Company Number: US-ROCHE-2903804

PATIENT
  Age: 67 Year
  Sex: Female
  Weight: 59.928 kg

DRUGS (1)
  1. RITUXAN [Suspect]
     Active Substance: RITUXIMAB
     Indication: Non-Hodgkin^s lymphoma
     Dosage: EVERY THREE MONTHS
     Route: 042
     Dates: start: 20200818

REACTIONS (6)
  - SARS-CoV-2 antibody test negative [Unknown]
  - Pruritus [Unknown]
  - Skin burning sensation [Unknown]
  - Headache [Unknown]
  - Nausea [Unknown]
  - Weight increased [Unknown]

NARRATIVE: CASE EVENT DATE: 20210809
